FAERS Safety Report 8297807-X (Version None)
Quarter: 2012Q2

REPORT INFORMATION
  Report Type: 
  Country: None (occurrence: None)
  Receive Date: 20120419
  Receipt Date: 20120416
  Transmission Date: 20120825
  Serious: Yes (Life-Threatening, Hospitalization)
  Sender: FDA-Public Use
  Company Number: ES-SANOFI-AVENTIS-2012SA017848

PATIENT
  Age: 33 Year
  Sex: Male

DRUGS (5)
  1. NORTESTOSTERONE [Suspect]
     Route: 030
     Dates: start: 20100101, end: 20110601
  2. ZOLPIDEM TARTRATE [Suspect]
     Route: 048
     Dates: start: 20110401, end: 20110615
  3. DROSTANOLONE [Suspect]
     Route: 030
     Dates: start: 20100101, end: 20110601
  4. DIAZEPAM [Suspect]
     Route: 048
     Dates: start: 20110401, end: 20110604
  5. TRENBOLONE [Suspect]
     Route: 030
     Dates: start: 20100101, end: 20110601

REACTIONS (1)
  - ENCEPHALOPATHY [None]
